FAERS Safety Report 10370949 (Version 1)
Quarter: 2014Q1

REPORT INFORMATION
  Report Type: Spontaneous
  Country: US (occurrence: None)
  Receive Date: 20140306
  Receipt Date: 20140306
  Transmission Date: 20141002
  Serious: Yes (Hospitalization)
  Sender: FDA-Public Use
  Company Number: 163-21880-13080778

PATIENT
  Age: 77 Year
  Sex: Female

DRUGS (9)
  1. REVLIMID (LENALIDOMIDE) (CAPSULES) [Suspect]
     Indication: PLASMA CELL MYELOMA
     Route: 048
     Dates: start: 20100406
  2. ASPIRINE (ACETYLSALICYLIC ACID) (UNKNOWN) [Concomitant]
  3. DIOVAN HCT (CO-DIOVAN) (UNKNOWN) [Concomitant]
  4. ENALAPRIL MALEATE (ENALAPRIL MALEATE) (UNKNOWN) [Concomitant]
  5. LASIX (FUROSEMIDE) (UNKNOWN) [Concomitant]
  6. MAGNESIUM (MAGNESIUM) (UNKNOWN) [Concomitant]
  7. TIZANADINE HCL (UNKNOWN) [Concomitant]
  8. VITAMIN B-12 (CYANOCOBALAMIN) (UNKNOWN) [Concomitant]
  9. VITAMIN D (ERGOCALCIFEROL) (UNKNOWN) [Concomitant]

REACTIONS (1)
  - Full blood count decreased [None]
